FAERS Safety Report 25375120 (Version 2)
Quarter: 2025Q2

REPORT INFORMATION
  Report Type: Spontaneous
  Country: US (occurrence: US)
  Receive Date: 20250529
  Receipt Date: 20250605
  Transmission Date: 20250717
  Serious: No
  Sender: GUERBET
  Company Number: US-GUERBET / LLC-US-20250093

PATIENT
  Age: 43 Year
  Sex: Female
  Weight: 90 kg

DRUGS (1)
  1. ELUCIREM [Suspect]
     Active Substance: GADOPICLENOL
     Indication: Magnetic resonance cholangiopancreatography
     Route: 042
     Dates: start: 20241021, end: 20241021

REACTIONS (4)
  - Rash [Recovered/Resolved]
  - Pruritus [Recovered/Resolved]
  - Urticaria [Recovered/Resolved]
  - Tachycardia [Recovered/Resolved]

NARRATIVE: CASE EVENT DATE: 20241021
